FAERS Safety Report 25141223 (Version 1)
Quarter: 2025Q1

REPORT INFORMATION
  Report Type: Spontaneous
  Country: GB (occurrence: GB)
  Receive Date: 20250331
  Receipt Date: 20250331
  Transmission Date: 20250408
  Serious: Yes (Other)
  Sender: PFIZER
  Company Number: None

PATIENT
  Age: 77 Year
  Sex: Female

DRUGS (2)
  1. HYDROCORTISONE SODIUM SUCCINATE [Suspect]
     Active Substance: HYDROCORTISONE SODIUM SUCCINATE
     Dates: start: 20250319, end: 20250319
  2. DILTIAZEM [Concomitant]
     Active Substance: DILTIAZEM
     Dates: start: 2020

REACTIONS (4)
  - Insomnia [Not Recovered/Not Resolved]
  - Hypertensive crisis [Recovered/Resolved]
  - Pain in jaw [Unknown]
  - Headache [Unknown]

NARRATIVE: CASE EVENT DATE: 20250319
